FAERS Safety Report 7307598-4 (Version None)
Quarter: 2011Q1

REPORT INFORMATION
  Report Type: 
  Country: None (occurrence: None)
  Receive Date: 20110223
  Receipt Date: 20110214
  Transmission Date: 20110831
  Serious: Yes (Hospitalization)
  Sender: FDA-Public Use
  Company Number: US-B.I. PHARMACEUTICALS,INC./RIDGEFIELD-2011-BP-00757BP

PATIENT
  Age: 65 Year
  Sex: Female

DRUGS (12)
  1. FOSAMAX [Concomitant]
     Dosage: 10 MG
  2. METFORMIN [Concomitant]
     Dosage: 2000 MG
  3. PRADAXA [Suspect]
     Indication: HEART RATE INCREASED
  4. LOPID [Concomitant]
     Dosage: 600 MG
  5. ZOCOR [Concomitant]
     Dosage: 20 MG
  6. PRADAXA [Suspect]
     Indication: ATRIAL FIBRILLATION
     Dosage: 300 MG
     Route: 048
     Dates: start: 20101226, end: 20110104
  7. ARIMIDEX [Concomitant]
     Dosage: 1 MG
  8. LOPRESSOR [Concomitant]
     Dosage: 100 MG
  9. LASIX [Concomitant]
     Dosage: 20 MG
  10. CARDIZEM [Concomitant]
     Dosage: 120 MG
  11. NOVOLIN N [Concomitant]
     Dosage: 64 U
  12. NOVALOG [Concomitant]
     Dosage: 52 U

REACTIONS (4)
  - ABDOMINAL PAIN [None]
  - GALLBLADDER DISORDER [None]
  - ABDOMINAL PAIN UPPER [None]
  - ABDOMINAL HERNIA [None]
